FAERS Safety Report 6909171-6 (Version None)
Quarter: 2010Q3

REPORT INFORMATION
  Report Type: 
  Country: None (occurrence: None)
  Receive Date: 20100805
  Receipt Date: 20100727
  Transmission Date: 20110219
  Serious: Yes (Hospitalization)
  Sender: FDA-Public Use
  Company Number: US-JNJFOC-20100800485

PATIENT
  Age: 6 Year
  Sex: Female

DRUGS (4)
  1. CHILDREN'S MOTRIN [Suspect]
     Indication: PYREXIA
     Route: 048
  2. CHILDREN'S MOTRIN [Suspect]
     Indication: VIRAL INFECTION
     Route: 048
  3. TYLENOL CHILD UNSPECIFIED [Suspect]
     Indication: PYREXIA
     Route: 048
  4. TYLENOL CHILD UNSPECIFIED [Suspect]
     Indication: VIRAL INFECTION
     Route: 048

REACTIONS (2)
  - PNEUMONIA [None]
  - TRANSMISSION OF AN INFECTIOUS AGENT VIA A MEDICINAL PRODUCT [None]
